FAERS Safety Report 9182330 (Version 1)
Quarter: 2013Q1

REPORT INFORMATION
  Report Type: Spontaneous
  Country: US (occurrence: None)
  Receive Date: 20130321
  Receipt Date: 20130321
  Transmission Date: 20140127
  Serious: Yes (Other)
  Sender: FDA-Public Use
  Company Number: None

PATIENT
  Sex: Female
  Weight: 40.82 kg

DRUGS (7)
  1. FORTEO [Suspect]
  2. SYNTHROID [Concomitant]
  3. CALCIUM [Concomitant]
  4. FOLTABS [Concomitant]
  5. MIRALAX [Concomitant]
  6. DICYCLOMINE [Concomitant]
  7. LANSOPRAZOLE [Concomitant]

REACTIONS (4)
  - Neoplasm malignant [None]
  - Pruritus [None]
  - Rash [None]
  - Swelling [None]
